FAERS Safety Report 4756143-6 (Version None)
Quarter: 2005Q3

REPORT INFORMATION
  Report Type: 
  Country: None (occurrence: None)
  Receive Date: 20050826
  Receipt Date: 20041213
  Transmission Date: 20060218
  Serious: Yes (Other)
  Sender: FDA-Public Use
  Company Number: USA-2004-0018000

PATIENT
  Sex: Male

DRUGS (2)
  1. OXYCONTIN [Suspect]
  2. PERCOCET [Suspect]

REACTIONS (1)
  - DRUG DEPENDENCE [None]
